FAERS Safety Report 4450126-1 (Version None)
Quarter: 2004Q3

REPORT INFORMATION
  Report Type: 
  Country: None (occurrence: None)
  Receive Date: 20040802
  Receipt Date: 20031203
  Transmission Date: 20050211
  Serious: Yes (Other)
  Sender: FDA-Public Use
  Company Number: US-SHR-03-018185

PATIENT
  Age: 48 Year
  Sex: Male
  Weight: 115.2 kg

DRUGS (2)
  1. MAGNEVIST [Suspect]
     Indication: NUCLEAR MAGNETIC RESONANCE IMAGING BRAIN
     Dosage: 20 ML, 1 DOSE, INTRAVENOUS
     Route: 042
     Dates: start: 20031128, end: 20031128
  2. CORTISONE(CORTISONE) [Concomitant]

REACTIONS (5)
  - BURNING SENSATION MUCOSAL [None]
  - GENERALISED ERYTHEMA [None]
  - HYPERHIDROSIS [None]
  - LARYNGEAL OEDEMA [None]
  - PRURITUS GENERALISED [None]
